FAERS Safety Report 8162958-7 (Version None)
Quarter: 2012Q1

REPORT INFORMATION
  Report Type: 
  Country: None (occurrence: None)
  Receive Date: 20120224
  Receipt Date: 20120222
  Transmission Date: 20120608
  Serious: Yes (Other)
  Sender: FDA-Public Use
  Company Number: US-SHIRE-ALL1-2012-01060

PATIENT
  Sex: Female
  Weight: 68.027 kg

DRUGS (3)
  1. CARBATROL [Suspect]
     Indication: CONVULSION
     Dosage: 200 MG, OTHER (2 CAPSULES IN AM AND UNKNOWN AMOUNT OF CAPSULES IN PM)
     Route: 048
  2. VIMPAT [Concomitant]
     Indication: CONVULSION
     Dosage: UNK MG, 2X/DAY:BID
     Route: 048
  3. CARBATROL [Suspect]
     Dosage: 200 MG, OTHER (1 CAPSULE IN AM AND 2 CAPSULES IN PM)
     Route: 048

REACTIONS (7)
  - BALANCE DISORDER [None]
  - DRUG LEVEL ABOVE THERAPEUTIC [None]
  - FEELING ABNORMAL [None]
  - HEADACHE [None]
  - FATIGUE [None]
  - DRUG LEVEL BELOW THERAPEUTIC [None]
  - CONVULSION [None]
